FAERS Safety Report 18756691 (Version 1)
Quarter: 2021Q1

REPORT INFORMATION
  Report Type: Report from Study
  Country: PH (occurrence: PH)
  Receive Date: 20210119
  Receipt Date: 20210119
  Transmission Date: 20210419
  Serious: Yes (Death)
  Sender: FDA-Public Use
  Company Number: PH-ASTRAZENECA-2021A006431

PATIENT
  Sex: Female

DRUGS (1)
  1. TAGRISSO [Suspect]
     Active Substance: OSIMERTINIB
     Dosage: 80.0MG UNKNOWN
     Route: 048
     Dates: start: 202003, end: 202007

REACTIONS (5)
  - Constipation [Unknown]
  - Cerebrovascular accident [Fatal]
  - Metastases to bone marrow [Fatal]
  - Oedema [Unknown]
  - Malignant neoplasm progression [Fatal]
